FAERS Safety Report 7401148-X (Version None)
Quarter: 2011Q2

REPORT INFORMATION
  Report Type: 
  Country: None (occurrence: None)
  Receive Date: 20110407
  Receipt Date: 20110402
  Transmission Date: 20111010
  Serious: Yes (Other)
  Sender: FDA-Public Use
  Company Number: CR-PFIZER INC-2011073953

PATIENT
  Age: 63 Year
  Sex: Female

DRUGS (5)
  1. PLAVIX [Concomitant]
     Dosage: 75 MG, 1X/DAY
  2. ZIAC [Concomitant]
     Dosage: BISOPROLOL FUMARATE 5.0 MG / HYDROCHLOROTHIAZIDE 6.25 MG, 1X/DAY
  3. LIPITOR [Suspect]
     Dosage: 80 MG, 1X/DAY
     Route: 048
     Dates: start: 20110401
  4. CARDIOASPIRINA [Concomitant]
     Dosage: 81 MG, 1X/DAY
  5. DIOVAN [Concomitant]
     Dosage: 160 MG, 1X/DAY

REACTIONS (5)
  - CHEST DISCOMFORT [None]
  - ASTHENIA [None]
  - VOMITING [None]
  - NAUSEA [None]
  - DIZZINESS [None]
